FAERS Safety Report 11096725 (Version 3)
Quarter: 2015Q4

REPORT INFORMATION
  Report Type: Report from Study
  Country: US (occurrence: US)
  Receive Date: 20150507
  Receipt Date: 20151001
  Transmission Date: 20160304
  Serious: No
  Sender: FDA-Public Use
  Company Number: US-AMGEN-USASP2015043114

PATIENT
  Age: 55 Year
  Sex: Male

DRUGS (2)
  1. ENBREL [Suspect]
     Active Substance: ETANERCEPT
     Indication: PSORIASIS
  2. ENBREL [Suspect]
     Active Substance: ETANERCEPT
     Indication: RHEUMATOID ARTHRITIS
     Dosage: 50 MG, 2 TIMES/WK
     Route: 065
     Dates: start: 20150401

REACTIONS (6)
  - Abdominal pain upper [Recovered/Resolved]
  - Skin plaque [Recovering/Resolving]
  - Psoriasis [Unknown]
  - Abdominal pain [Recovered/Resolved]
  - Off label use [Unknown]
  - Therapy responder [Recovering/Resolving]

NARRATIVE: CASE EVENT DATE: 2015
